FAERS Safety Report 6981541-X (Version None)
Quarter: 2010Q3

REPORT INFORMATION
  Report Type: 
  Country: None (occurrence: None)
  Receive Date: 20100909
  Receipt Date: 20100825
  Transmission Date: 20110219
  Serious: Yes (Other)
  Sender: FDA-Public Use
  Company Number: ACO_01159_2010

PATIENT
  Sex: Female
  Weight: 74.8435 kg

DRUGS (10)
  1. AMPYRA [Suspect]
     Indication: GAIT DISTURBANCE
     Dosage: (10 MG  QD ONLY 1 DOSE ORAL)
     Route: 048
     Dates: start: 20100519, end: 20100519
  2. COPAXONE /03175301/ [Concomitant]
  3. GABAPENTIN [Concomitant]
  4. DETROL LA [Concomitant]
  5. ZANAFLEX [Concomitant]
  6. CYMBALTA [Concomitant]
  7. KLONOPIN [Concomitant]
  8. CELEBREX [Concomitant]
  9. PROVIGIL [Concomitant]
  10. CALCIUM [Concomitant]

REACTIONS (8)
  - DIARRHOEA [None]
  - ERYTHEMA [None]
  - INFLUENZA LIKE ILLNESS [None]
  - MUSCLE SPASMS [None]
  - MUSCULAR WEAKNESS [None]
  - NAUSEA [None]
  - PRURITUS [None]
  - SENSATION OF HEAVINESS [None]
